FAERS Safety Report 4869100-6 (Version None)
Quarter: 2005Q4

REPORT INFORMATION
  Report Type: 
  Country: None (occurrence: None)
  Receive Date: 20051227
  Receipt Date: 20051214
  Transmission Date: 20060501
  Serious: Yes (Hospitalization)
  Sender: FDA-Public Use
  Company Number: FR-JNJFOC-20051103973

PATIENT
  Age: 35 Year
  Sex: Female
  Weight: 45 kg

DRUGS (4)
  1. TOPIRAMATE [Suspect]
     Indication: EPILEPSY
     Dosage: 300 MG, 2 IN 1 DAY, ORAL
     Route: 048
  2. DEPAKENE [Suspect]
     Indication: EPILEPSY
     Dosage: 500 MG, 2 IN 1 DAY, ORAL
     Route: 048
  3. LEXOMIL (BROMAZEPAM) [Suspect]
     Indication: DEPRESSION
     Dosage: 3 MG, IN 1 DAY, ORAL
     Route: 048
  4. STILNOX (TABLETS) ZOLPIDEM [Concomitant]

REACTIONS (21)
  - BLOOD LACTIC ACID INCREASED [None]
  - COAGULATION FACTOR DECREASED [None]
  - COAGULATION FACTOR V LEVEL DECREASED [None]
  - COMA [None]
  - DIALYSIS [None]
  - HAEMODIALYSIS [None]
  - HAEMODILUTION [None]
  - HAEMODYNAMIC INSTABILITY [None]
  - HAEMOGLOBIN DECREASED [None]
  - HEART RATE DECREASED [None]
  - HEPATOCELLULAR DAMAGE [None]
  - HYPOGLYCAEMIA [None]
  - HYPOKALAEMIA [None]
  - LABORATORY TEST ABNORMAL [None]
  - LOSS OF CONSCIOUSNESS [None]
  - LUNG DISORDER [None]
  - LUNG INFILTRATION [None]
  - PLATELET COUNT DECREASED [None]
  - SHOCK [None]
  - SUICIDE ATTEMPT [None]
  - THROMBOCYTOPENIA [None]
